FAERS Safety Report 20727391 (Version 2)
Quarter: 2022Q2

REPORT INFORMATION
  Report Type: Spontaneous
  Country: US (occurrence: US)
  Receive Date: 20220419
  Receipt Date: 20220519
  Transmission Date: 20220720
  Serious: No
  Sender: FDA-Public Use
  Company Number: US-BIOMARINAP-US-2022-142746

PATIENT
  Age: 11 Year
  Sex: Male

DRUGS (1)
  1. VOXZOGO [Suspect]
     Active Substance: VOSORITIDE
     Indication: Osteochondrodysplasia
     Dosage: 0.25 MILLILITER, QD
     Route: 058
     Dates: start: 20220326

REACTIONS (3)
  - COVID-19 [Recovered/Resolved]
  - Injection site erythema [Recovered/Resolved]
  - Rash [Recovered/Resolved]
